FAERS Safety Report 7313979-5 (Version None)
Quarter: 2011Q1

REPORT INFORMATION
  Report Type: 
  Country: None (occurrence: None)
  Receive Date: 20110225
  Receipt Date: 20110215
  Transmission Date: 20110831
  Serious: Yes (Other)
  Sender: FDA-Public Use
  Company Number: PHHY2011VE12749

PATIENT
  Age: 57 Year
  Sex: Female

DRUGS (1)
  1. ACLASTA [Suspect]
     Indication: OSTEOPOROSIS
     Dosage: 5 MG/ ANNUALLY
     Route: 042
     Dates: start: 20110214

REACTIONS (3)
  - PRURITUS GENERALISED [None]
  - INFUSION SITE ERYTHEMA [None]
  - GENERALISED ERYTHEMA [None]
